FAERS Safety Report 25892743 (Version 2)
Quarter: 2025Q4

REPORT INFORMATION
  Report Type: Spontaneous
  Country: EU (occurrence: EU)
  Receive Date: 20251007
  Receipt Date: 20251209
  Transmission Date: 20260119
  Serious: Yes (Congenital Anomaly, Other)
  Sender: AMGEN
  Company Number: None

PATIENT
  Age: 8 Month
  Sex: Male

DRUGS (7)
  1. ADALIMUMAB [Suspect]
     Active Substance: ADALIMUMAB
     Indication: Rheumatoid arthritis
     Dosage: PAUSED IN FIRST TRIMESTER (APPROXIMATELY IN WEEK 5 OR 6), BUT RESTARTED IN THIRD SEMESTER DUE TO JOI
     Route: 064
     Dates: start: 2019
  2. METOCLOPRAMIDE [Concomitant]
     Active Substance: METOCLOPRAMIDE
     Indication: Nausea
     Dosage: DOSE: 10 MG AS NECESSARY, MAX 3 TIMES A DAY
     Route: 064
     Dates: start: 20240515
  3. LOCOID [Concomitant]
     Active Substance: HYDROCORTISONE BUTYRATE
     Indication: Eczema
     Dosage: 1 DOSAGE FORM
     Route: 064
     Dates: start: 20240222
  4. Triaxis [Concomitant]
     Indication: Tetanus immunisation
     Route: 064
     Dates: start: 20241205, end: 20241205
  5. Triaxis [Concomitant]
     Indication: Pertussis immunisation
  6. Triaxis [Concomitant]
     Indication: Diphtheria immunisation
  7. CLINDAMYCIN [Concomitant]
     Active Substance: CLINDAMYCIN
     Indication: Bacterial vaginosis
     Dosage: 1 APPLICATION AT UNKNOWN INTERVALS.
     Route: 064
     Dates: start: 20240727, end: 20240803

REACTIONS (3)
  - Cleft uvula [Unknown]
  - Cleft lip [Unknown]
  - Foetal exposure during pregnancy [Recovered/Resolved]
